FAERS Safety Report 10213759 (Version 2)
Quarter: 2014Q3

REPORT INFORMATION
  Report Type: Spontaneous
  Country: GB (occurrence: None)
  Receive Date: 20140530
  Receipt Date: 20140819
  Transmission Date: 20150326
  Serious: Yes (Hospitalization)
  Sender: FDA-Public Use
  Company Number: 2362947

PATIENT
  Age: 58 Year
  Sex: Male

DRUGS (15)
  1. AMITRIPTYLINE [Concomitant]
     Active Substance: AMITRIPTYLINE
  2. SENNA [Concomitant]
     Active Substance: SENNA LEAF\SENNOSIDES\SENNOSIDES A AND B
  3. GABAPENTIN. [Concomitant]
     Active Substance: GABAPENTIN
  4. APREPITANT [Concomitant]
     Active Substance: APREPITANT
  5. DEXAMETHASONE. [Concomitant]
     Active Substance: DEXAMETHASONE
  6. CISPLATIN. [Suspect]
     Active Substance: CISPLATIN
     Indication: BLADDER CANCER
     Dosage: 140 MG/M 2 MILLIGRAM(S)/SQ. METER (1 DAY), INTRAVENOUS (NOT OTHERWISE SPECIFIED), 63 DAYS?
     Route: 042
     Dates: start: 20130628, end: 20130830
  7. DOMPERIDONE [Concomitant]
     Active Substance: DOMPERIDONE
  8. MACROGOL [Concomitant]
     Active Substance: POLYETHYLENE GLYCOLS
  9. PARACETAMOL [Concomitant]
     Active Substance: ACETAMINOPHEN
  10. CIPROFLOXACIN. [Concomitant]
     Active Substance: CIPROFLOXACIN
  11. ONDANSETRON [Concomitant]
     Active Substance: ONDANSETRON
  12. ENOXAPARIN [Concomitant]
     Active Substance: ENOXAPARIN
  13. GEMCITABINE HYDROCHLORIDE. [Suspect]
     Active Substance: GEMCITABINE HYDROCHLORIDE
     Indication: BLADDER CANCER
     Dosage: 1900 MG/M 2 MILLIGRAM(S)/SQ. METER, (1 DAY), INTRAVENOUS (NOT OTHERWISE SPECIFIED), 63 DAYS?
     Route: 042
     Dates: start: 20130628, end: 20130830
  14. MORPHINE SULFATE. [Concomitant]
     Active Substance: MORPHINE SULFATE
  15. TAMSULOSIN [Concomitant]
     Active Substance: TAMSULOSIN

REACTIONS (3)
  - Dizziness [None]
  - Malaise [None]
  - Anaemia [None]

NARRATIVE: CASE EVENT DATE: 20130711
